FAERS Safety Report 4454762-8 (Version None)
Quarter: 2004Q3

REPORT INFORMATION
  Report Type: 
  Country: None (occurrence: None)
  Receive Date: 20040921
  Receipt Date: 20040820
  Transmission Date: 20050211
  Serious: Yes (Other)
  Sender: FDA-Public Use
  Company Number: JP-JNJFOC-20040810131

PATIENT
  Sex: Female

DRUGS (7)
  1. RISPERDAL [Suspect]
     Indication: SCHIZOPHRENIA
     Route: 049
  2. BIPERIDEN HYDROCHLORIDE [Concomitant]
     Route: 049
     Dates: start: 20031024
  3. ALPRAZOLAM [Concomitant]
     Indication: ANXIETY
     Route: 049
     Dates: start: 20031024
  4. FLUNITRAZEPAM [Concomitant]
     Indication: INSOMNIA
     Route: 049
     Dates: start: 20031024
  5. ZONISAMIDE [Concomitant]
     Indication: EPILEPSY
     Route: 049
     Dates: start: 20031208
  6. LEVOMEPROMAZINE MALEATE [Concomitant]
     Indication: SCHIZOPHRENIA
     Route: 049
     Dates: start: 20031212
  7. MAGNESIUM OXIDE [Concomitant]
     Indication: CONSTIPATION
     Route: 049
     Dates: start: 20040315, end: 20040411

REACTIONS (3)
  - EOSINOPHIL PERCENTAGE DECREASED [None]
  - MEAN CELL HAEMOGLOBIN INCREASED [None]
  - ZINC SULPHATE TURBIDITY DECREASED [None]
